FAERS Safety Report 19740435 (Version 2)
Quarter: 2021Q3

REPORT INFORMATION
  Report Type: Report from Study
  Country: AT (occurrence: AT)
  Receive Date: 20210824
  Receipt Date: 20210907
  Transmission Date: 20211014
  Serious: Yes (Other)
  Sender: FDA-Public Use
  Company Number: AT-PFIZER INC-202101038513

PATIENT
  Age: 50 Year
  Sex: Female
  Weight: 55 kg

DRUGS (17)
  1. BEVACIZUMAB. [Suspect]
     Active Substance: BEVACIZUMAB
     Indication: NON-SMALL CELL LUNG CANCER
     Dosage: 885 MG
     Dates: start: 20201215
  2. PACLITAXEL. [Suspect]
     Active Substance: PACLITAXEL
     Indication: NON-SMALL CELL LUNG CANCER
     Dosage: 331 MG
     Dates: start: 20201215
  3. CARBOPLATIN. [Suspect]
     Active Substance: CARBOPLATIN
     Indication: NON-SMALL CELL LUNG CANCER
     Dosage: 622 MG
     Dates: start: 20201215
  4. APREDNISLON [Concomitant]
     Active Substance: PREDNISOLONE
     Dosage: UNK
     Dates: start: 20210422, end: 20210427
  5. DRONABINOL. [Concomitant]
     Active Substance: DRONABINOL
     Dosage: UNK
     Dates: start: 202103
  6. ATEZOLIZUMAB. [Suspect]
     Active Substance: ATEZOLIZUMAB
     Indication: NON-SMALL CELL LUNG CANCER
     Dosage: 1200 MG, EVERY 3 WEEKS
     Route: 041
     Dates: start: 20201215
  7. DIBONDRIN [Concomitant]
     Active Substance: DIPHENHYDRAMINE HYDROCHLORIDE
     Dosage: UNK
     Dates: start: 20201123
  8. CIPROFLOXACIN. [Concomitant]
     Active Substance: CIPROFLOXACIN
     Dosage: UNK
     Dates: start: 20210510, end: 202105
  9. FENISTIL [Concomitant]
     Active Substance: DIMETHINDENE
     Dosage: UNK
  10. FORTECORTIN [DEXAMETHASONE] [Concomitant]
     Active Substance: DEXAMETHASONE
     Dosage: UNK
     Dates: start: 20201122
  11. PANTOPRAZOL [PANTOPRAZOLE] [Concomitant]
     Active Substance: PANTOPRAZOLE
     Dosage: UNK UNK, 1X/DAY
     Dates: start: 20210422, end: 20210427
  12. RATIOGRASTIM [Concomitant]
     Active Substance: FILGRASTIM
     Dosage: UNK
     Dates: start: 20210104
  13. DESLORATADIN [Concomitant]
     Active Substance: DESLORATADINE
     Dosage: UNK
  14. NEUROMULTIVIT [Concomitant]
     Active Substance: CYANOCOBALAMIN\PYRIDOXINE\THIAMINE
     Dosage: UNK
     Dates: start: 20201218
  15. ENTEROBENE [Concomitant]
     Dosage: UNK
     Dates: start: 20210427
  16. PELMEG [Concomitant]
     Active Substance: PEGFILGRASTIM
     Dosage: UNK
     Dates: start: 20210114
  17. ULSAL [Concomitant]
     Active Substance: RANITIDINE HYDROCHLORIDE
     Dosage: UNK
     Dates: start: 20201123

REACTIONS (1)
  - Immune-mediated enterocolitis [Recovering/Resolving]

NARRATIVE: CASE EVENT DATE: 20210518
